FAERS Safety Report 15321055 (Version 1)
Quarter: 2018Q3

REPORT INFORMATION
  Report Type: Spontaneous
  Country: US (occurrence: US)
  Receive Date: 20180827
  Receipt Date: 20180827
  Transmission Date: 20181010
  Serious: No
  Sender: FDA-Public Use
  Company Number: US-BRAINTREE LABORATORIES-180006

PATIENT
  Age: 40 Year
  Sex: Female
  Weight: 122.46 kg

DRUGS (1)
  1. GOLYTELY [Suspect]
     Active Substance: POLYETHYLENE GLYCOL 3350\POTASSIUM CHLORIDE\SODIUM BICARBONATE\SODIUM CHLORIDE\SODIUM SULFATE ANHYDROUS
     Indication: COLONOSCOPY
     Dosage: 1.3L
     Route: 048
     Dates: start: 20171228, end: 20171228

REACTIONS (1)
  - Vomiting [None]

NARRATIVE: CASE EVENT DATE: 20171228
